FAERS Safety Report 22036194 (Version 3)
Quarter: 2023Q2

REPORT INFORMATION
  Report Type: Report from Study
  Country: US (occurrence: US)
  Receive Date: 20230225
  Receipt Date: 20230401
  Transmission Date: 20230721
  Serious: No
  Sender: FDA-Public Use
  Company Number: US-002147023-NVSC2023US038806

PATIENT
  Sex: Male

DRUGS (2)
  1. HYDROXYZINE PAMOATE [Suspect]
     Active Substance: HYDROXYZINE PAMOATE
     Indication: Pruritus
     Dosage: UNK
     Route: 048
     Dates: end: 20230216
  2. PREDNISONE [Suspect]
     Active Substance: PREDNISONE
     Indication: Rash
     Dosage: UNK
     Route: 048
     Dates: end: 20230216

REACTIONS (2)
  - Pharyngitis streptococcal [Recovered/Resolved]
  - Guttate psoriasis [Unknown]
